FAERS Safety Report 8159642-2 (Version None)
Quarter: 2012Q1

REPORT INFORMATION
  Report Type: 
  Country: None (occurrence: None)
  Receive Date: 20120223
  Receipt Date: 20120220
  Transmission Date: 20120608
  Serious: Yes (Other)
  Sender: FDA-Public Use
  Company Number: US-ROCHE-1042097

PATIENT

DRUGS (2)
  1. XELODA [Suspect]
     Indication: NEOPLASM
     Route: 048
  2. SORAFENIB [Suspect]
     Indication: NEOPLASM
     Route: 048

REACTIONS (8)
  - SEPSIS [None]
  - MUCOSAL INFLAMMATION [None]
  - PALMAR-PLANTAR ERYTHRODYSAESTHESIA SYNDROME [None]
  - NEUTROPENIA [None]
  - DIARRHOEA [None]
  - FATIGUE [None]
  - ANAEMIA [None]
  - THROMBOCYTOPENIA [None]
